FAERS Safety Report 5074953-5 (Version None)
Quarter: 2006Q3

REPORT INFORMATION
  Report Type: 
  Country: None (occurrence: None)
  Receive Date: 20060717
  Receipt Date: 20060111
  Transmission Date: 20061208
  Serious: No
  Sender: FDA-Public Use
  Company Number: 2006000112

PATIENT
  Age: 50 Year
  Sex: Female

DRUGS (5)
  1. TARCEVA [Suspect]
     Indication: NON-SMALL CELL LUNG CANCER
     Dosage: 150 MG (QD), ORAL
     Route: 048
  2. ADVAIR DISKUS (SERETIDE MITE) [Concomitant]
  3. COMBIVENT [Concomitant]
  4. SYNTHROID [Concomitant]
  5. DURAGESIC-100 [Concomitant]

REACTIONS (4)
  - ACNE [None]
  - DIARRHOEA [None]
  - DYSPNOEA [None]
  - WHEEZING [None]
